FAERS Safety Report 8535192-6 (Version None)
Quarter: 2012Q3

REPORT INFORMATION
  Report Type: 
  Country: None (occurrence: None)
  Receive Date: 20120724
  Receipt Date: 20120710
  Transmission Date: 20120928
  Serious: Yes (Other)
  Sender: FDA-Public Use
  Company Number: CHPA2012US015287

PATIENT
  Age: 37 Year
  Sex: Female

DRUGS (1)
  1. NODOZ [Suspect]
     Indication: SOMNOLENCE
     Dosage: 200 MG, EVERY MORNING
     Route: 048
     Dates: start: 19970101

REACTIONS (3)
  - COELIAC DISEASE [None]
  - INCORRECT DRUG ADMINISTRATION DURATION [None]
  - FOOD ALLERGY [None]
